FAERS Safety Report 5150795-7 (Version None)
Quarter: 2006Q4

REPORT INFORMATION
  Report Type: 
  Country: None (occurrence: None)
  Receive Date: 20061108
  Receipt Date: 20061025
  Transmission Date: 20070319
  Serious: Yes (Death, Hospitalization)
  Sender: FDA-Public Use
  Company Number: 2006PV000030

PATIENT
  Age: 63 Year
  Sex: Male

DRUGS (2)
  1. DEPOCYTE  (CYTARABINE)(50 MG ) [Suspect]
     Indication: DISEASE RECURRENCE
     Dosage: 50 MG; QOW; ITVN
     Route: 042
     Dates: start: 20060426, end: 20061012
  2. DEPOCYTE  (CYTARABINE)(50 MG ) [Suspect]
     Indication: NERVOUS SYSTEM DISORDER
     Dosage: 50 MG; QOW; ITVN
     Route: 042
     Dates: start: 20060426, end: 20061012

REACTIONS (5)
  - BRAIN OEDEMA [None]
  - EPILEPSY [None]
  - ESCHERICHIA SEPSIS [None]
  - MENINGITIS BACTERIAL [None]
  - SEPTIC SHOCK [None]
